FAERS Safety Report 11061036 (Version 2)
Quarter: 2015Q2

REPORT INFORMATION
  Report Type: Report from Study
  Country: US (occurrence: US)
  Receive Date: 20150424
  Receipt Date: 20150522
  Transmission Date: 20150821
  Serious: Yes (Other)
  Sender: FDA-Public Use
  Company Number: US-AEGERION PHARMACEUTICALS-AEGR001255

PATIENT

DRUGS (1)
  1. JUXTAPID [Suspect]
     Active Substance: LOMITAPIDE MESYLATE
     Indication: TYPE IIA HYPERLIPIDAEMIA
     Dosage: 5 MG, UNK
     Route: 048
     Dates: start: 20150304

REACTIONS (9)
  - Pain [Unknown]
  - Asthenia [Unknown]
  - Nausea [Unknown]
  - Malaise [Unknown]
  - Low density lipoprotein increased [Unknown]
  - Loss of consciousness [Unknown]
  - Faecal incontinence [Unknown]
  - Presyncope [Unknown]
  - Gastroenteritis viral [Unknown]

NARRATIVE: CASE EVENT DATE: 201503
